FAERS Safety Report 9939662 (Version 1)
Quarter: 2014Q1

REPORT INFORMATION
  Report Type: Spontaneous
  Country: US (occurrence: US)
  Receive Date: 20140303
  Receipt Date: 20140303
  Transmission Date: 20141002
  Serious: No
  Sender: FDA-Public Use
  Company Number: US-ABBVIE-13P-163-1034416-00

PATIENT
  Age: 57 Year
  Sex: Male
  Weight: 72.64 kg

DRUGS (1)
  1. HUMIRA [Suspect]
     Indication: RHEUMATOID ARTHRITIS
     Dates: start: 2010

REACTIONS (2)
  - Injection site rash [Recovered/Resolved]
  - Injection site pruritus [Recovered/Resolved]
